FAERS Safety Report 15099951 (Version 4)
Quarter: 2018Q4

REPORT INFORMATION
  Report Type: Spontaneous
  Country: US (occurrence: US)
  Receive Date: 20180703
  Receipt Date: 20181025
  Transmission Date: 20190204
  Serious: No
  Sender: FDA-Public Use
  Company Number: US-AMGEN-USASP2018088837

PATIENT
  Age: 67 Year
  Sex: Female

DRUGS (3)
  1. ENBREL [Suspect]
     Active Substance: ETANERCEPT
     Indication: RHEUMATOID ARTHRITIS
     Dosage: UNK
     Route: 065
  2. HUMIRA [Suspect]
     Active Substance: ADALIMUMAB
     Indication: RHEUMATOID ARTHRITIS
     Dosage: UNK
     Route: 065
  3. RASUVO [Concomitant]
     Active Substance: METHOTREXATE SODIUM
     Dosage: 25 MG, UNK

REACTIONS (4)
  - Drug hypersensitivity [Unknown]
  - Drug effect incomplete [Unknown]
  - Fatigue [Unknown]
  - Musculoskeletal stiffness [Unknown]
